FAERS Safety Report 17422069 (Version 1)
Quarter: 2020Q1

REPORT INFORMATION
  Report Type: Spontaneous
  Country: US (occurrence: US)
  Receive Date: 20200214
  Receipt Date: 20200214
  Transmission Date: 20200409
  Serious: Yes (Hospitalization, Other)
  Sender: FDA-Public Use
  Company Number: US-UNITED THERAPEUTICS-UNT-2020-002215

PATIENT
  Sex: Female

DRUGS (1)
  1. REMODULIN [Suspect]
     Active Substance: TREPROSTINIL
     Indication: PULMONARY ARTERIAL HYPERTENSION
     Dosage: UNK
     Route: 058
     Dates: start: 201311

REACTIONS (8)
  - Cyanosis [Unknown]
  - Diarrhoea [Unknown]
  - Vascular rupture [Unknown]
  - Neoplasm malignant [Unknown]
  - Cough [Unknown]
  - Burning sensation [Unknown]
  - Weight decreased [Unknown]
  - Haematemesis [Unknown]
